FAERS Safety Report 4381345-0 (Version None)
Quarter: 2004Q2

REPORT INFORMATION
  Report Type: 
  Country: None (occurrence: None)
  Receive Date: 20040616
  Receipt Date: 20040601
  Transmission Date: 20050107
  Serious: Yes (Death)
  Sender: FDA-Public Use
  Company Number: US_0406103413

PATIENT
  Age: 44 Year

DRUGS (3)
  1. FLUOXETINE [Suspect]
  2. BUPROPION HCL [Concomitant]
  3. ACETAMINOPHEN AND HYDROCODONE BITARTRATE [Concomitant]

REACTIONS (3)
  - CARDIO-RESPIRATORY ARREST [None]
  - DRUG TOXICITY [None]
  - MULTIPLE DRUG OVERDOSE [None]
